FAERS Safety Report 7234932-6 (Version None)
Quarter: 2011Q1

REPORT INFORMATION
  Report Type: 
  Country: None (occurrence: None)
  Receive Date: 20110120
  Receipt Date: 20110114
  Transmission Date: 20110831
  Serious: Yes (Hospitalization, Other)
  Sender: FDA-Public Use
  Company Number: US-AMGEN-USASP2011000963

PATIENT

DRUGS (2)
  1. NEUPOGEN [Suspect]
     Indication: NEUTROPENIA
     Dosage: 300 A?G, UNK
     Route: 058
     Dates: start: 20100104
  2. NAVELBINE [Concomitant]

REACTIONS (2)
  - LEUKOCYTOSIS [None]
  - FEBRILE NEUTROPENIA [None]
